FAERS Safety Report 18202196 (Version 1)
Quarter: 2020Q3

REPORT INFORMATION
  Report Type: Spontaneous
  Country: US (occurrence: US)
  Receive Date: 20200827
  Receipt Date: 20200827
  Transmission Date: 20201103
  Serious: No
  Sender: FDA-Public Use
  Company Number: US-PFIZER INC-2020330287

PATIENT
  Age: 81 Year
  Sex: Female

DRUGS (2)
  1. DILANTIN [Suspect]
     Active Substance: PHENYTOIN
     Dosage: 500 MG, DAILY (200MG IN MORNING, AND 300MG AT NIGHT)
     Route: 048
  2. DILANTIN [Suspect]
     Active Substance: PHENYTOIN
     Indication: EPILEPSY
     Dosage: 250 MG, DAILY (STARTED HALF OF HER CURRENT DOSE; DOSE WAS THEN DOUBLED)

REACTIONS (1)
  - Dizziness [Unknown]
